FAERS Safety Report 10165222 (Version 1)
Quarter: 2014Q2

REPORT INFORMATION
  Report Type: Spontaneous
  Country: US (occurrence: US)
  Receive Date: 20140510
  Receipt Date: 20140510
  Transmission Date: 20141212
  Serious: No
  Sender: FDA-Public Use
  Company Number: US-BRISTOL-MYERS SQUIBB COMPANY-19784974

PATIENT
  Age: 55 Year
  Sex: Female
  Weight: 78 kg

DRUGS (3)
  1. BYDUREON [Suspect]
     Indication: TYPE 2 DIABETES MELLITUS
     Dosage: PRESCRIPTION #:  4007658
     Dates: start: 20131104
  2. LANTUS [Concomitant]
     Dosage: 1DF:30 UNITS
     Route: 058
  3. NOVOLOG [Concomitant]
     Dosage: 1DF-10UNITS
     Route: 058

REACTIONS (2)
  - Underdose [Unknown]
  - Product quality issue [Unknown]
